FAERS Safety Report 18411434 (Version 2)
Quarter: 2020Q4

REPORT INFORMATION
  Report Type: Spontaneous
  Country: US (occurrence: US)
  Receive Date: 20201021
  Receipt Date: 20201027
  Transmission Date: 20210114
  Serious: Yes (Other)
  Sender: FDA-Public Use
  Company Number: US-PFIZER INC-2020395756

PATIENT
  Age: 72 Year
  Sex: Female
  Weight: 55.79 kg

DRUGS (1)
  1. ESTRING [Suspect]
     Active Substance: ESTRADIOL
     Indication: ATROPHIC VULVOVAGINITIS
     Dosage: 2 MG, MONTHLY (ONCE A MONTH)
     Dates: start: 20200925, end: 20201002

REACTIONS (5)
  - Poor quality product administered [Unknown]
  - Vaginal infection [Unknown]
  - Migraine [Recovering/Resolving]
  - Contraindicated product administered [Unknown]
  - Drug ineffective [Unknown]

NARRATIVE: CASE EVENT DATE: 2020
